FAERS Safety Report 7543555-0 (Version None)
Quarter: 2011Q2

REPORT INFORMATION
  Report Type: 
  Country: None (occurrence: None)
  Receive Date: 20110613
  Receipt Date: 20020702
  Transmission Date: 20111010
  Serious: Yes (Hospitalization)
  Sender: FDA-Public Use
  Company Number: PHBS2002CA07644

PATIENT
  Sex: Male

DRUGS (3)
  1. DIABETIC PILL [Concomitant]
  2. EXELON [Suspect]
     Route: 048
     Dates: start: 20010630
  3. EXELON [Suspect]
     Dosage: 6 MG, BID
     Route: 048
     Dates: start: 20011206

REACTIONS (1)
  - CARDIAC FAILURE CONGESTIVE [None]
